FAERS Safety Report 19550953 (Version 1)
Quarter: 2021Q3

REPORT INFORMATION
  Report Type: Spontaneous
  Country: CL (occurrence: CL)
  Receive Date: 20210715
  Receipt Date: 20210715
  Transmission Date: 20211014
  Serious: Yes (Other)
  Sender: FDA-Public Use
  Company Number: CL-SUN PHARMACEUTICAL INDUSTRIES LTD-2021RR-304429

PATIENT
  Age: 26 Year

DRUGS (1)
  1. ZOLPIDEM [Suspect]
     Active Substance: ZOLPIDEM TARTRATE
     Indication: BIPOLAR DISORDER
     Dosage: 10 MILLIGRAM, BETWEEN 5 TO 10 TABLETS EVERY NIGHT
     Route: 065

REACTIONS (3)
  - Generalised tonic-clonic seizure [Unknown]
  - Overdose [Unknown]
  - Confusional state [Unknown]
